FAERS Safety Report 24374384 (Version 3)
Quarter: 2024Q4

REPORT INFORMATION
  Report Type: Spontaneous
  Country: US (occurrence: US)
  Receive Date: 20240927
  Receipt Date: 20241009
  Transmission Date: 20250115
  Serious: No
  Sender: PFIZER
  Company Number: US-PFIZER INC-202400263455

PATIENT
  Age: 43 Year
  Sex: Male
  Weight: 88.45 kg

DRUGS (3)
  1. TESTOSTERONE CYPIONATE [Suspect]
     Active Substance: TESTOSTERONE CYPIONATE
     Indication: Blood testosterone decreased
     Dosage: 0.7 ML, WEEKLY (INJECTED EACH WEEK)
     Dates: start: 20240901
  2. TESTOSTERONE CYPIONATE [Suspect]
     Active Substance: TESTOSTERONE CYPIONATE
     Indication: Fatigue
     Dosage: 0.7 ML, WEEKLY (INJECTED EACH WEEK)
     Dates: start: 20240908
  3. TESTOSTERONE CYPIONATE [Suspect]
     Active Substance: TESTOSTERONE CYPIONATE
     Indication: Asthenia
     Dosage: 0.7 ML, WEEKLY (INJECTED EACH WEEK)
     Dates: start: 20240915

REACTIONS (5)
  - Injection site pain [Unknown]
  - Feeling drunk [Unknown]
  - Tinnitus [Unknown]
  - Brain fog [Unknown]
  - Product colour issue [Unknown]

NARRATIVE: CASE EVENT DATE: 20240101
